FAERS Safety Report 17433342 (Version 2)
Quarter: 2020Q1

REPORT INFORMATION
  Report Type: Spontaneous
  Country: US (occurrence: US)
  Receive Date: 20200219
  Receipt Date: 20200312
  Transmission Date: 20200409
  Serious: No
  Sender: FDA-Public Use
  Company Number: US-ASTRAZENECA-2020SE22725

PATIENT
  Sex: Female
  Weight: 5 kg

DRUGS (7)
  1. SYNAGIS [Suspect]
     Active Substance: PALIVIZUMAB
     Indication: PREMATURE BABY
     Route: 030
  2. VITAMIN D [Concomitant]
     Active Substance: VITAMIN D NOS
  3. TYLENOL [Concomitant]
     Active Substance: ACETAMINOPHEN
  4. MCT OIL [Concomitant]
  5. DIURIL [Concomitant]
     Active Substance: CHLOROTHIAZIDE
  6. SYNAGIS [Suspect]
     Active Substance: PALIVIZUMAB
     Indication: CHRONIC RESPIRATORY DISEASE
     Route: 030
  7. SYNAGIS [Suspect]
     Active Substance: PALIVIZUMAB
     Indication: PREMATURE BABY
     Route: 030

REACTIONS (1)
  - Irritability [Unknown]
